FAERS Safety Report 5773070-6 (Version None)
Quarter: 2008Q2

REPORT INFORMATION
  Report Type: 
  Country: None (occurrence: None)
  Receive Date: 20080613
  Receipt Date: 20080603
  Transmission Date: 20081010
  Serious: Yes (Hospitalization)
  Sender: FDA-Public Use
  Company Number: BE-GENENTECH-253929

PATIENT
  Sex: Female
  Weight: 81 kg

DRUGS (14)
  1. BEVACIZUMAB [Suspect]
     Indication: NON-SMALL CELL LUNG CANCER
     Dosage: 1275 MG, Q3W
     Route: 042
     Dates: start: 20071217
  2. CISPLATIN [Suspect]
     Indication: NON-SMALL CELL LUNG CANCER
     Dosage: 160 MG, UNKNOWN
     Route: 042
     Dates: start: 20071217
  3. GEMCITABINE [Suspect]
     Indication: NON-SMALL CELL LUNG CANCER
     Dosage: 2498 MG, UNKNOWN
     Route: 042
     Dates: start: 20071217
  4. DIPYRIDAMOLE [Concomitant]
     Indication: DRUG USE FOR UNKNOWN INDICATION
  5. ZYRTEC [Concomitant]
     Indication: DRUG USE FOR UNKNOWN INDICATION
  6. AMLOR [Concomitant]
     Indication: DRUG USE FOR UNKNOWN INDICATION
  7. SERETIDE [Concomitant]
     Indication: DRUG USE FOR UNKNOWN INDICATION
  8. SPIRIVA [Concomitant]
     Indication: DRUG USE FOR UNKNOWN INDICATION
  9. ALGOPYRINE [Concomitant]
     Indication: DRUG USE FOR UNKNOWN INDICATION
  10. LYSOMUCIL [Concomitant]
     Indication: DRUG USE FOR UNKNOWN INDICATION
  11. MYOLASTAN [Concomitant]
     Indication: DRUG USE FOR UNKNOWN INDICATION
  12. DAFLON (FRANCE) [Concomitant]
     Indication: DRUG USE FOR UNKNOWN INDICATION
  13. TILCOTIL [Concomitant]
     Indication: DRUG USE FOR UNKNOWN INDICATION
  14. ZADITEN [Concomitant]
     Indication: DRUG USE FOR UNKNOWN INDICATION

REACTIONS (1)
  - GENERAL PHYSICAL HEALTH DETERIORATION [None]
